FAERS Safety Report 5794847-7 (Version None)
Quarter: 2008Q2

REPORT INFORMATION
  Report Type: 
  Country: None (occurrence: None)
  Receive Date: 20080630
  Receipt Date: 20080620
  Transmission Date: 20081010
  Serious: Yes (Other)
  Sender: FDA-Public Use
  Company Number: US-WYE-H04630808

PATIENT
  Sex: Female

DRUGS (1)
  1. ROBITUSSIN DM [Suspect]
     Indication: NASOPHARYNGITIS
     Dosage: UNKNOWN, DAILY
     Route: 048

REACTIONS (3)
  - COUGH [None]
  - DEPENDENCE [None]
  - THERAPEUTIC RESPONSE UNEXPECTED [None]
